FAERS Safety Report 19152445 (Version 2)
Quarter: 2021Q3

REPORT INFORMATION
  Report Type: Spontaneous
  Country: US (occurrence: US)
  Receive Date: 20210419
  Receipt Date: 20210701
  Transmission Date: 20211014
  Serious: No
  Sender: FDA-Public Use
  Company Number: US-009507513-2104USA002270

PATIENT

DRUGS (1)
  1. NOXAFIL [Suspect]
     Active Substance: POSACONAZOLE
     Dosage: 18 MG/1 ML, FREQUENY UNKNOWN BY REPORTER
     Route: 041

REACTIONS (2)
  - Product deposit [Unknown]
  - Adverse event [Unknown]
